FAERS Safety Report 14274185 (Version 1)
Quarter: 2017Q4

REPORT INFORMATION
  Report Type: Spontaneous
  Country: DE (occurrence: DE)
  Receive Date: 20171211
  Receipt Date: 20171211
  Transmission Date: 20180321
  Serious: Yes (Other)
  Sender: FDA-Public Use
  Company Number: DE-OTSUKA-2017_018620

PATIENT
  Age: 35 Year
  Sex: Female
  Weight: 83 kg

DRUGS (6)
  1. ABILIFY [Suspect]
     Active Substance: ARIPIPRAZOLE
     Indication: SCHIZOAFFECTIVE DISORDER
     Dosage: 10 MG, QD (0 - 38 GESTATIONAL WEEK)
     Route: 048
     Dates: start: 20160403, end: 20161225
  2. QUETIAPINE. [Suspect]
     Active Substance: QUETIAPINE
     Indication: SLEEP DISORDER
     Dosage: 50 MG, QD
     Route: 048
     Dates: start: 20160403, end: 20161230
  3. AKINETON [Concomitant]
     Active Substance: BIPERIDEN HYDROCHLORIDE
     Indication: EXTRAPYRAMIDAL DISORDER
     Dosage: 25 MG, QD
     Route: 048
  4. QUETIAPINE. [Suspect]
     Active Substance: QUETIAPINE
     Indication: SLEEP DISORDER
     Dosage: 50 MG, QD (0 - 38.5 GESTATIONAL WEEK)
     Route: 048
     Dates: start: 20160403, end: 20161230
  5. FOLIC ACID. [Concomitant]
     Active Substance: FOLIC ACID
     Indication: PROPHYLAXIS OF NEURAL TUBE DEFECT
     Dosage: UNK (4.4 - 17.5 GESTATIONAL WEEK)
     Route: 048
     Dates: start: 20160505, end: 20160805
  6. INFLUENZA VACCINE [Concomitant]
     Active Substance: INFLUENZA VIRUS VACCINE
     Indication: IMMUNISATION
     Dosage: UNK
     Route: 030

REACTIONS (6)
  - Maternal exposure during pregnancy [Recovered/Resolved]
  - Product use issue [Unknown]
  - Gestational diabetes [Recovered/Resolved]
  - Weight increased [Unknown]
  - Live birth [Unknown]
  - Extrapyramidal disorder [Unknown]
